FAERS Safety Report 25763843 (Version 1)
Quarter: 2025Q3

REPORT INFORMATION
  Report Type: Spontaneous
  Country: US (occurrence: US)
  Receive Date: 20250905
  Receipt Date: 20250905
  Transmission Date: 20251021
  Serious: No
  Sender: DOMPE FARMACEUTICI
  Company Number: US-FARMAPROD-202411-3987

PATIENT
  Age: 60 Year
  Sex: Female

DRUGS (25)
  1. OXERVATE [Suspect]
     Active Substance: CENEGERMIN-BKBJ
     Indication: Neurotrophic keratopathy
     Route: 047
     Dates: start: 20241117, end: 20241121
  2. OXERVATE [Suspect]
     Active Substance: CENEGERMIN-BKBJ
  3. OMEPRAZOLE [Concomitant]
     Active Substance: OMEPRAZOLE
  4. DEXLANSOPRAZOLE [Concomitant]
     Active Substance: DEXLANSOPRAZOLE
  5. LINZESS [Concomitant]
     Active Substance: LINACLOTIDE
  6. CYCLOSPORINE [Concomitant]
     Active Substance: CYCLOSPORINE
  7. ONDANSETRON [Concomitant]
     Active Substance: ONDANSETRON
  8. ONDANSETRON HYDROCHLORIDE [Concomitant]
     Active Substance: ONDANSETRON HYDROCHLORIDE
  9. ONDANSETRON HYDROCHLORIDE [Concomitant]
     Active Substance: ONDANSETRON HYDROCHLORIDE
  10. CHLORHEXIDINE GLUCONATE [Concomitant]
     Active Substance: CHLORHEXIDINE GLUCONATE
  11. TOPIRAMATE [Concomitant]
     Active Substance: TOPIRAMATE
  12. EMGALITY [Concomitant]
     Active Substance: GALCANEZUMAB-GNLM
  13. PEPCID [Concomitant]
     Active Substance: FAMOTIDINE
  14. BETAMETHASONE DIPROPIONATE [Concomitant]
     Active Substance: BETAMETHASONE DIPROPIONATE
  15. ZENPEP [Concomitant]
     Active Substance: PANCRELIPASE AMYLASE\PANCRELIPASE LIPASE\PANCRELIPASE PROTEASE
  16. TRAMADOL HCL [Concomitant]
     Active Substance: TRAMADOL HYDROCHLORIDE
  17. REFRESH CLASSIC [Concomitant]
     Active Substance: POLYVINYL ALCOHOL\POVIDONE
  18. DICYCLOMINE HYDROCHLORIDE [Concomitant]
     Active Substance: DICYCLOMINE HYDROCHLORIDE
  19. ZOLPIDEM TARTRATE [Concomitant]
     Active Substance: ZOLPIDEM TARTRATE
  20. HYDROXYZINE HYDROCHLORIDE [Concomitant]
     Active Substance: HYDROXYZINE HYDROCHLORIDE
  21. LIDODERM [Concomitant]
     Active Substance: LIDOCAINE
  22. SUMATRIPTAN SUCCINATE [Concomitant]
     Active Substance: SUMATRIPTAN SUCCINATE
  23. MYRBETRIQ [Concomitant]
     Active Substance: MIRABEGRON
  24. IBSRELA [Concomitant]
     Active Substance: TENAPANOR HYDROCHLORIDE
  25. BOTOX [Concomitant]
     Active Substance: ONABOTULINUMTOXINA

REACTIONS (12)
  - Product administration error [Unknown]
  - Headache [Unknown]
  - Dyspnoea [Not Recovered/Not Resolved]
  - Cough [Not Recovered/Not Resolved]
  - Influenza [Not Recovered/Not Resolved]
  - Eye swelling [Unknown]
  - Foreign body sensation in eyes [Unknown]
  - Eye pain [Unknown]
  - Photophobia [Unknown]
  - Illness [Unknown]
  - Therapy interrupted [Unknown]
  - Ear pain [Unknown]

NARRATIVE: CASE EVENT DATE: 20241117
